FAERS Safety Report 4589365-8 (Version None)
Quarter: 2005Q1

REPORT INFORMATION
  Report Type: 
  Country: None (occurrence: None)
  Receive Date: 20050216
  Receipt Date: 20050131
  Transmission Date: 20050727
  Serious: Yes (Death)
  Sender: FDA-Public Use
  Company Number: B0349825A

PATIENT
  Age: 52 Year
  Sex: Female

DRUGS (3)
  1. WELLBUTRIN SR [Suspect]
     Dosage: ORAL
     Route: 048
  2. QUETIAPINE (FORMULATION UNKNOWN) (QUETIAPINE) [Suspect]
     Dosage: ORAL
     Route: 048
  3. DIAZEPAM [Suspect]
     Dosage: ORAL
     Route: 048

REACTIONS (4)
  - CARDIO-RESPIRATORY ARREST [None]
  - COMPLETED SUICIDE [None]
  - DRUG TOXICITY [None]
  - TOXICOLOGIC TEST ABNORMAL [None]
